FAERS Safety Report 20838618 (Version 1)
Quarter: 2022Q2

REPORT INFORMATION
  Report Type: Report from Study
  Country: US (occurrence: US)
  Receive Date: 20220517
  Receipt Date: 20220517
  Transmission Date: 20220721
  Serious: No
  Sender: FDA-Public Use
  Company Number: US-KYOWAKIRIN-2022BKK006771

PATIENT

DRUGS (1)
  1. BUROSUMAB [Suspect]
     Active Substance: BUROSUMAB
     Indication: Hypophosphataemia
     Dosage: 40 MG, EVERY 28 DAYS
     Route: 058
     Dates: start: 20190420

REACTIONS (1)
  - Product dose omission issue [Unknown]

NARRATIVE: CASE EVENT DATE: 20220504
